FAERS Safety Report 9778385 (Version 2)
Quarter: 2014Q1

REPORT INFORMATION
  Report Type: Spontaneous
  Country: US (occurrence: None)
  Receive Date: 20131219
  Receipt Date: 20140207
  Transmission Date: 20141002
  Serious: Yes (Other)
  Sender: FDA-Public Use
  Company Number: PL-AE13-000081

PATIENT
  Age: 13 Year
  Sex: Male

DRUGS (1)
  1. POLYVINYL ALCOHOL\POVIDONE\TETRAHYDROZOLINE HYDROCHLORIDE [Suspect]
     Route: 048
     Dates: start: 2013, end: 2013

REACTIONS (3)
  - Suicide attempt [None]
  - Incorrect route of drug administration [None]
  - Exposure via ingestion [None]
